FAERS Safety Report 9231788 (Version 1)
Quarter: 2013Q2

REPORT INFORMATION
  Report Type: Report from Study
  Country: US (occurrence: US)
  Receive Date: 20130415
  Receipt Date: 20130415
  Transmission Date: 20140414
  Serious: Yes (Other)
  Sender: FDA-Public Use
  Company Number: US-BAXTER-2013BAX013414

PATIENT
  Sex: 0

DRUGS (2)
  1. CYCLOPHOSPHAMIDE FOR INJECTION, USP [Suspect]
     Indication: B-CELL LYMPHOMA
     Dosage: DAYS 1 - 3
     Route: 065
  2. FLUDARABINE [Suspect]
     Indication: B-CELL LYMPHOMA
     Dosage: DAYS 1- 3

REACTIONS (2)
  - Haematotoxicity [Unknown]
  - Toxicity to various agents [Unknown]
